FAERS Safety Report 9423945 (Version 2)
Quarter: 2013Q3

REPORT INFORMATION
  Report Type: Spontaneous
  Country: US (occurrence: US)
  Receive Date: 20130729
  Receipt Date: 20130819
  Transmission Date: 20140515
  Serious: No
  Sender: FDA-Public Use
  Company Number: US-009507513-1307USA013866

PATIENT
  Age: 33 Year
  Sex: Female
  Weight: 145.58 kg

DRUGS (1)
  1. NEXPLANON [Suspect]
     Indication: METRORRHAGIA
     Dosage: UNK
     Route: 058
     Dates: start: 20130530

REACTIONS (5)
  - Device dislocation [Unknown]
  - Device kink [Unknown]
  - Device breakage [Unknown]
  - Off label use [Unknown]
  - No adverse event [Unknown]
